FAERS Safety Report 19363359 (Version 6)
Quarter: 2021Q3

REPORT INFORMATION
  Report Type: Other
  Country: CA (occurrence: CA)
  Receive Date: 20210602
  Receipt Date: 20210929
  Transmission Date: 20211014
  Serious: Yes (Other)
  Sender: FDA-Public Use
  Company Number: CA-ROCHE-2841193

PATIENT
  Age: 75 Year
  Sex: Male
  Weight: 103 kg

DRUGS (32)
  1. FUCIDIN [Concomitant]
     Active Substance: FUSIDATE SODIUM
  2. FOSAVANCE [Concomitant]
     Active Substance: ALENDRONATE SODIUM\CHOLECALCIFEROL
  3. ACTEMRA [Suspect]
     Active Substance: TOCILIZUMAB
     Indication: RHEUMATOID ARTHRITIS
     Dosage: 416 MG
     Route: 042
     Dates: start: 20161129, end: 2017
  4. FUROSEMIDE. [Concomitant]
     Active Substance: FUROSEMIDE
     Route: 048
  5. ZAROXOLYN [Concomitant]
     Active Substance: METOLAZONE
  6. TYLENOL WITH CODEINE [Concomitant]
     Active Substance: ACETAMINOPHEN\CODEINE PHOSPHATE
  7. ACETYLSALICYLIC ACID [Concomitant]
     Active Substance: ASPIRIN
  8. ATORVASTATIN CALCIUM. [Concomitant]
     Active Substance: ATORVASTATIN CALCIUM
     Route: 048
  9. EZETROL [Concomitant]
     Active Substance: EZETIMIBE
  10. EZETIMIBE. [Concomitant]
     Active Substance: EZETIMIBE
  11. METFORMIN [Concomitant]
     Active Substance: METFORMIN HYDROCHLORIDE
  12. METFORMIN HCL [Concomitant]
     Active Substance: METFORMIN HYDROCHLORIDE
     Route: 048
  13. PANTOLOC [Concomitant]
     Active Substance: PANTOPRAZOLE SODIUM
  14. PREDNISONE. [Concomitant]
     Active Substance: PREDNISONE
     Indication: POLYMYALGIA RHEUMATICA
     Dosage: TAKE 12.5 MG DAILY FOR 2 WEEKS AND THEN 10 MG DAILY FOR 4 WEEKS
     Route: 048
  15. RABEPRAZOLE SODIUM. [Concomitant]
     Active Substance: RABEPRAZOLE SODIUM
     Route: 048
  16. TAMSULOSIN HCL [Concomitant]
     Active Substance: TAMSULOSIN HYDROCHLORIDE
     Route: 048
  17. XARELTO [Concomitant]
     Active Substance: RIVAROXABAN
  18. GLICLAZIDE MR [Concomitant]
     Active Substance: GLICLAZIDE
     Route: 048
  19. MAGNESIUM [Concomitant]
     Active Substance: MAGNESIUM
  20. NITROGLYCERIN TRANSDERMAL DELIVERY SYSTEM [Concomitant]
     Active Substance: NITROGLYCERIN
     Dosage: 0.2 MG/HOUR TRANSDERMAL PATCH, 24 HOURS [12HRS/12HRS OFF]
     Route: 062
  21. SYMBICORT [Concomitant]
     Active Substance: BUDESONIDE\FORMOTEROL FUMARATE DIHYDRATE
     Dosage: 2 PUFF
  22. METOPROLOL. [Concomitant]
     Active Substance: METOPROLOL
  23. MELOXICAM. [Concomitant]
     Active Substance: MELOXICAM
     Route: 048
  24. METOPROLOL TARTRATE. [Concomitant]
     Active Substance: METOPROLOL TARTRATE
     Route: 048
  25. JARDIANCE [Concomitant]
     Active Substance: EMPAGLIFLOZIN
  26. TIOTROPIUM [Concomitant]
     Active Substance: TIOTROPIUM
  27. LASIX [Concomitant]
     Active Substance: FUROSEMIDE
     Indication: FLUID RETENTION
     Route: 042
     Dates: start: 202108
  28. OXYCOCET [Concomitant]
     Active Substance: ACETAMINOPHEN\OXYCODONE HYDROCHLORIDE
  29. ACTEMRA [Suspect]
     Active Substance: TOCILIZUMAB
     Dosage: NO PIR ON FILE
     Route: 042
     Dates: start: 2017
  30. DUTASTERIDE. [Concomitant]
     Active Substance: DUTASTERIDE
  31. RAMIPRIL. [Concomitant]
     Active Substance: RAMIPRIL
     Route: 048
  32. SPIRIVA [Concomitant]
     Active Substance: TIOTROPIUM BROMIDE MONOHYDRATE

REACTIONS (24)
  - Spinal compression fracture [Recovering/Resolving]
  - Cellulitis [Recovering/Resolving]
  - Joint swelling [Recovered/Resolved]
  - Rotator cuff syndrome [Unknown]
  - Arthralgia [Recovering/Resolving]
  - Dysuria [Unknown]
  - Abdominal discomfort [Unknown]
  - Oedema peripheral [Unknown]
  - Back pain [Recovering/Resolving]
  - Arthralgia [Recovered/Resolved]
  - Osteoarthritis [Unknown]
  - Weight decreased [Unknown]
  - Pedal pulse abnormal [Unknown]
  - Fluid retention [Unknown]
  - Pollakiuria [Unknown]
  - Weight increased [Unknown]
  - Skin discolouration [Recovered/Resolved]
  - Rales [Unknown]
  - Polymyalgia rheumatica [Unknown]
  - Bursitis [Unknown]
  - Swelling [Unknown]
  - Dyspnoea [Unknown]
  - Cystitis [Unknown]
  - Oxygen saturation decreased [Unknown]

NARRATIVE: CASE EVENT DATE: 2021
